FAERS Safety Report 8806137 (Version 1)
Quarter: 2012Q4

REPORT INFORMATION
  Report Type: 
  Country: IE (occurrence: IE)
  Receive Date: 20120925
  Receipt Date: 20120925
  Transmission Date: 20130627
  Serious: Yes (Death, Other)
  Sender: FDA-Public Use
  Company Number: PHHY2012IE082393

PATIENT
  Age: 22 Year
  Sex: Male
  Weight: 48.6 kg

DRUGS (4)
  1. TOBI PODHALER [Suspect]
     Indication: INFECTIVE PULMONARY EXACERBATION OF CYSTIC FIBROSIS
  2. TOBI [Suspect]
     Dosage: 140 mg, BID
     Route: 042
     Dates: start: 20120207
  3. MEROPENEM [Concomitant]
     Dosage: 2 g, BID
     Route: 042
     Dates: start: 20120131
  4. COLOMYCIN [Concomitant]
     Dosage: 2 mega units, BID
     Route: 042
     Dates: start: 20120131, end: 20120204

REACTIONS (4)
  - Infective pulmonary exacerbation of cystic fibrosis [Fatal]
  - Respiratory failure [Fatal]
  - Dyspnoea [Unknown]
  - Sputum increased [Unknown]
